FAERS Safety Report 5756013-0 (Version None)
Quarter: 2008Q2

REPORT INFORMATION
  Report Type: 
  Country: None (occurrence: None)
  Receive Date: 20080602
  Receipt Date: 20080521
  Transmission Date: 20081010
  Serious: Yes (Death)
  Sender: FDA-Public Use
  Company Number: CA-BAXTER-2008BH005489

PATIENT
  Age: 80 Year
  Sex: Male

DRUGS (9)
  1. SODIUM BICARBONATE ^BAXTER^ [Suspect]
     Indication: DRUG USE FOR UNKNOWN INDICATION
     Route: 065
     Dates: start: 20080312
  2. SODIUM CHLORIDE [Suspect]
     Indication: DRUG USE FOR UNKNOWN INDICATION
  3. LEVOPHED [Concomitant]
     Indication: DRUG USE FOR UNKNOWN INDICATION
     Route: 065
     Dates: start: 20080311, end: 20080313
  4. VASOPRESSIN [Concomitant]
     Indication: DRUG USE FOR UNKNOWN INDICATION
     Route: 065
     Dates: start: 20080312
  5. EPINEPHRINE [Concomitant]
     Indication: DRUG USE FOR UNKNOWN INDICATION
     Route: 065
     Dates: start: 20080312
  6. FENTANYL-100 [Concomitant]
     Indication: DRUG USE FOR UNKNOWN INDICATION
     Route: 065
     Dates: start: 20080312
  7. SODIUM CHLORIDE [Concomitant]
     Route: 065
  8. LEVOPHED [Concomitant]
     Route: 065
     Dates: start: 20080314
  9. LEVOPHED [Concomitant]
     Route: 065
     Dates: start: 20080314

REACTIONS (2)
  - PENILE HAEMORRHAGE [None]
  - SEPSIS [None]
